FAERS Safety Report 20814035 (Version 1)
Quarter: 2022Q2

REPORT INFORMATION
  Report Type: Other
  Country: GB (occurrence: GB)
  Receive Date: 20220511
  Receipt Date: 20220511
  Transmission Date: 20220720
  Serious: Yes (Disabling)
  Sender: FDA-Public Use
  Company Number: None

PATIENT

DRUGS (13)
  1. MONTELUKAST SODIUM [Suspect]
     Active Substance: MONTELUKAST SODIUM
     Indication: Ill-defined disorder
     Dosage: UNK
     Route: 065
     Dates: start: 20220428
  2. CALCIUM CARBONATE [Concomitant]
     Active Substance: CALCIUM CARBONATE
     Indication: Ill-defined disorder
     Dosage: UNK UNK, OD
     Route: 065
     Dates: start: 20211005
  3. BACLOFEN [Concomitant]
     Active Substance: BACLOFEN
     Indication: Ill-defined disorder
     Dosage: 1 DOSAGE FORM, TID
     Route: 065
     Dates: start: 20220219, end: 20220319
  4. BUPRENORPHINE [Concomitant]
     Active Substance: BUPRENORPHINE
     Indication: Ill-defined disorder
     Dosage: UNK UNK, PRN (APPLY AS NEEDED PRN FOR THE INFREQUENT OCCURENC)
     Route: 065
     Dates: start: 20220302, end: 20220330
  5. CAPSAICIN [Concomitant]
     Active Substance: CAPSAICIN
     Indication: Ill-defined disorder
     Dosage: UNK, QID (APPLY 4 TIMES/DAY AS ADV BY NEUROLOGY,06.12.2017)
     Route: 065
     Dates: start: 20211005
  6. CREON [Concomitant]
     Active Substance: PANCRELIPASE AMYLASE\PANCRELIPASE LIPASE\PANCRELIPASE PROTEASE
     Indication: Ill-defined disorder
     Dosage: UNK (USE AS DIRECTED BY HOSPITAL -TAKES ABOUT 800)
     Route: 065
     Dates: start: 20211005
  7. DYMISTA [Concomitant]
     Active Substance: AZELASTINE HYDROCHLORIDE\FLUTICASONE PROPIONATE
     Indication: Ill-defined disorder
     Dosage: UNK, BID (USE AS DIRECTED  BY  HOSPITAL -TAKES ABOUT 800)
     Route: 065
     Dates: start: 20220428
  8. GAVISCON ADVANCE [POTASSIUM BICARBONATE;SODIUM ALGINATE] [Concomitant]
     Indication: Ill-defined disorder
     Dosage: UNK UNK, PRN (TAKE 1 OR 2 AS NEEDED)
     Route: 065
     Dates: start: 20211005
  9. LANSOPRAZOLE [Concomitant]
     Active Substance: LANSOPRAZOLE
     Indication: Ill-defined disorder
     Dosage: 1 DOSAGE FORM, OD
     Route: 065
     Dates: start: 20211005
  10. ACETAMINOPHEN [Concomitant]
     Active Substance: ACETAMINOPHEN
     Indication: Ill-defined disorder
     Dosage: UNK, QID (TAKE ONE OR TWO TABLETS FOUR TIMES A DAY WHEN N)
     Route: 065
     Dates: start: 20220219
  11. PREGABALIN [Concomitant]
     Active Substance: PREGABALIN
     Indication: Ill-defined disorder
     Dosage: UNK (TAKE ONE CAPSULE TWICE A DAY. INCREASE IN STEPS)
     Route: 065
     Dates: start: 20220219, end: 20220330
  12. QVAR [Concomitant]
     Active Substance: BECLOMETHASONE DIPROPIONATE
     Indication: Ill-defined disorder
     Dosage: 2 DOSAGE FORM, BID
     Route: 065
     Dates: start: 20211005
  13. ALBUTEROL [Concomitant]
     Active Substance: ALBUTEROL
     Indication: Ill-defined disorder
     Dosage: UNK, QID (1-2 PUFFS FOUR TIMES A DAY,PRN)
     Route: 065
     Dates: start: 20211005

REACTIONS (6)
  - Adverse drug reaction [Recovered/Resolved]
  - Chromaturia [Recovered/Resolved]
  - Sleep disorder [Recovered/Resolved]
  - Disturbance in attention [Recovered/Resolved]
  - Myalgia [Recovered/Resolved]
  - Muscle spasms [Recovered/Resolved]

NARRATIVE: CASE EVENT DATE: 20220428
